FAERS Safety Report 6206831-X (Version None)
Quarter: 2009Q2

REPORT INFORMATION
  Report Type: 
  Country: None (occurrence: None)
  Receive Date: 20090528
  Receipt Date: 20090527
  Transmission Date: 20091009
  Serious: Yes (Other)
  Sender: FDA-Public Use
  Company Number: A0786396A

PATIENT
  Age: 69 Year
  Sex: Female

DRUGS (2)
  1. NICODERM CQ [Suspect]
     Indication: SMOKING CESSATION THERAPY
     Dosage: 21MG UNKNOWN
     Route: 062
     Dates: start: 20090501, end: 20090501
  2. NICOTINE [Suspect]
     Indication: SMOKING CESSATION THERAPY
     Route: 062

REACTIONS (4)
  - APPLICATION SITE ERYTHEMA [None]
  - HEPATIC ENZYME INCREASED [None]
  - PRURITUS [None]
  - RASH [None]
